FAERS Safety Report 16808316 (Version 1)
Quarter: 2019Q3

REPORT INFORMATION
  Report Type: Spontaneous
  Country: DZ (occurrence: DZ)
  Receive Date: 20190916
  Receipt Date: 20190916
  Transmission Date: 20191005
  Serious: Yes (Death)
  Sender: FDA-Public Use
  Company Number: DZ-SUN PHARMACEUTICAL INDUSTRIES LTD-2019R1-220710

PATIENT
  Age: 44 Year
  Sex: Female

DRUGS (1)
  1. OXIPLATIN (MANUFACTURER UNKNOWN) (OXALIPLATIN) (OXALIPLATIN) [Suspect]
     Active Substance: OXALIPLATIN
     Indication: PRODUCT USED FOR UNKNOWN INDICATION
     Dosage: UNK
     Route: 065

REACTIONS (1)
  - Cardiopulmonary failure [Fatal]
